FAERS Safety Report 5700873-6 (Version None)
Quarter: 2008Q2

REPORT INFORMATION
  Report Type: 
  Country: None (occurrence: None)
  Receive Date: 20080410
  Receipt Date: 20080327
  Transmission Date: 20081010
  Serious: Yes (Congenital Anomaly)
  Sender: FDA-Public Use
  Company Number: A0683108A

PATIENT
  Sex: Female
  Weight: 4.5 kg

DRUGS (7)
  1. PAXIL [Suspect]
     Indication: POSTPARTUM DEPRESSION
     Dosage: 20MG PER DAY
     Dates: start: 19960304, end: 20001201
  2. AMOXICILLIN [Concomitant]
     Dates: start: 19990601
  3. SEPTRA [Concomitant]
  4. FLONASE [Concomitant]
  5. CLARITIN [Concomitant]
  6. PERCOCET [Concomitant]
     Dates: start: 19981201
  7. SODIUM FLUORIDE [Concomitant]
     Dates: start: 19990101

REACTIONS (6)
  - CARDIAC MURMUR [None]
  - DRUG EXPOSURE DURING PREGNANCY [None]
  - EXERCISE TOLERANCE DECREASED [None]
  - MITRAL VALVE STENOSIS [None]
  - PULMONARY VALVE STENOSIS [None]
  - RIGHT VENTRICULAR HYPERTROPHY [None]
